FAERS Safety Report 6763198-6 (Version None)
Quarter: 2010Q2

REPORT INFORMATION
  Report Type: 
  Country: None (occurrence: None)
  Receive Date: 20100609
  Receipt Date: 20100607
  Transmission Date: 20101027
  Serious: Yes (Hospitalization)
  Sender: FDA-Public Use
  Company Number: US-GILEAD-2010-0029272

PATIENT
  Sex: Male
  Weight: 89.5 kg

DRUGS (9)
  1. LETAIRIS [Suspect]
     Indication: PULMONARY ARTERIAL HYPERTENSION
     Route: 048
  2. PLAVIX [Concomitant]
  3. ASPIRIN [Concomitant]
  4. LISINOPRIL [Concomitant]
  5. COREG [Concomitant]
  6. LIPITOR [Concomitant]
  7. FLOMAX [Concomitant]
  8. FOSRENOL [Concomitant]
  9. SENSIPAR [Concomitant]

REACTIONS (1)
  - FALL [None]
